FAERS Safety Report 20091606 (Version 1)
Quarter: 2021Q4

REPORT INFORMATION
  Report Type: Spontaneous
  Country: US (occurrence: None)
  Receive Date: 20211119
  Receipt Date: 20211119
  Transmission Date: 20220303
  Serious: No
  Sender: FDA-Public Use
  Company Number: 2021A783038

PATIENT
  Age: 55 Year
  Sex: Male

DRUGS (1)
  1. BUDESONIDE\FORMOTEROL\GLYCOPYRRONIUM [Suspect]
     Active Substance: BUDESONIDE\FORMOTEROL\GLYCOPYRRONIUM
     Indication: Pneumonia
     Dosage: DOSAGE UNKNOWN
     Route: 055

REACTIONS (2)
  - Feeling abnormal [Unknown]
  - Headache [Recovered/Resolved]
